FAERS Safety Report 5158756-9 (Version None)
Quarter: 2006Q4

REPORT INFORMATION
  Report Type: 
  Country: None (occurrence: None)
  Receive Date: 20061117
  Receipt Date: 20061031
  Transmission Date: 20070319
  Serious: Yes (Disabling)
  Sender: FDA-Public Use
  Company Number: 2006136611

PATIENT
  Age: 74 Year
  Sex: Female
  Weight: 40 kg

DRUGS (11)
  1. IRINOTECAN HCL [Suspect]
     Indication: PANCREATIC CARCINOMA
     Dosage: 50 MG (50 MG, 1 IN 2 WK), INTRAVENOUS
     Route: 042
     Dates: start: 20060905, end: 20061017
  2. MORPHINE SULFATE [Suspect]
     Indication: PAIN
     Dosage: 20 MG, ORAL
     Route: 048
     Dates: start: 20061010
  3. OXALIPLATIN [Concomitant]
  4. LASIX [Concomitant]
  5. ALDACTONE [Concomitant]
  6. SLOK-K (POTASSIUM CHLORIDE) [Concomitant]
  7. RABEPRAZOLE SODIUM [Concomitant]
  8. KRESTIN (POLYSACCHARIDE-K) [Concomitant]
  9. URSO (UROSODEOXYCHOLIC ACID) [Concomitant]
  10. SODIUM BICARBONATE IN PLASTIC CONTAINER [Concomitant]
  11. HANGE-SHASHIN-TO (HERBAL PREPARATION) [Concomitant]

REACTIONS (5)
  - DRUG INTERACTION [None]
  - GENERAL PHYSICAL HEALTH DETERIORATION [None]
  - MALAISE [None]
  - NAUSEA [None]
  - VOMITING [None]
